FAERS Safety Report 21880327 (Version 1)
Quarter: 2023Q1

REPORT INFORMATION
  Report Type: Spontaneous
  Country: US (occurrence: US)
  Receive Date: 20230118
  Receipt Date: 20230118
  Transmission Date: 20230417
  Serious: No
  Sender: FDA-Public Use
  Company Number: US-SA-2023SA010293

PATIENT

DRUGS (1)
  1. ALDURAZYME [Suspect]
     Active Substance: LARONIDASE
     Indication: Mucopolysaccharidosis
     Dosage: UNK UNK, QW
     Route: 041
     Dates: start: 20060906

REACTIONS (3)
  - Nasal congestion [Unknown]
  - Condition aggravated [Unknown]
  - Cough [Unknown]
